FAERS Safety Report 12253241 (Version 1)
Quarter: 2016Q2

REPORT INFORMATION
  Report Type: Spontaneous
  Country: BR (occurrence: BR)
  Receive Date: 20160411
  Receipt Date: 20160411
  Transmission Date: 20160815
  Serious: Yes (Hospitalization, Other)
  Sender: FDA-Public Use
  Company Number: BR-GLAXOSMITHKLINE-BR2016GSK045586

PATIENT
  Age: 71 Year
  Sex: Female
  Weight: 79 kg

DRUGS (3)
  1. SERETIDE [Suspect]
     Active Substance: FLUTICASONE PROPIONATE\SALMETEROL XINAFOATE
     Indication: ASTHMA
     Dosage: 2 PUFF(S), QD
     Route: 055
     Dates: start: 20090401
  2. INDAPEN [Concomitant]
     Active Substance: INDAPAMIDE
     Indication: TACHYCARDIA
     Dosage: 1 UNK, QD
     Route: 048
  3. LONCORD [Concomitant]
     Indication: TACHYCARDIA
     Dosage: 1 UNK, QD
     Route: 048

REACTIONS (8)
  - Hypersensitivity [Unknown]
  - Drug ineffective [Unknown]
  - Syncope [Unknown]
  - Asthma [Recovered/Resolved]
  - Asthmatic crisis [Unknown]
  - Cough [Recovering/Resolving]
  - Sinusitis [Recovering/Resolving]
  - Panic reaction [Unknown]

NARRATIVE: CASE EVENT DATE: 20160331
